FAERS Safety Report 24134434 (Version 1)
Quarter: 2024Q3

REPORT INFORMATION
  Report Type: Spontaneous
  Country: US (occurrence: US)
  Receive Date: 20240725
  Receipt Date: 20240725
  Transmission Date: 20241017
  Serious: No
  Sender: CIPLA
  Company Number: US-CIPLA LTD.-2024US03703

PATIENT

DRUGS (2)
  1. TESTOSTERONE [Suspect]
     Active Substance: TESTOSTERONE
     Indication: Product used for unknown indication
     Dosage: UNK
     Route: 065
  2. TESTOSTERONE [Suspect]
     Active Substance: TESTOSTERONE
     Dosage: UNK (10 DAYS AGO)
     Route: 065
     Dates: start: 20240330

REACTIONS (3)
  - Product dose omission issue [Unknown]
  - Product deposit [Unknown]
  - Product quality issue [Unknown]

NARRATIVE: CASE EVENT DATE: 20240330
